FAERS Safety Report 4965410-2 (Version None)
Quarter: 2006Q2

REPORT INFORMATION
  Report Type: 
  Country: None (occurrence: None)
  Receive Date: 20060406
  Receipt Date: 20060327
  Transmission Date: 20061013
  Serious: Yes (Other)
  Sender: FDA-Public Use
  Company Number: US-MERCK-0603USA04099

PATIENT
  Age: 69 Year
  Sex: Male

DRUGS (1)
  1. PRIMAXIN [Suspect]
     Indication: KLEBSIELLA INFECTION
     Route: 042

REACTIONS (3)
  - FALL [None]
  - LIMB INJURY [None]
  - STENOTROPHOMONAS INFECTION [None]
